APPROVED DRUG PRODUCT: AZITHROMYCIN
Active Ingredient: AZITHROMYCIN
Strength: EQ 500MG BASE
Dosage Form/Route: TABLET;ORAL
Application: A211318 | Product #001
Applicant: PHARMOBEDIENT CONSULTING LLC
Approved: Mar 17, 2021 | RLD: No | RS: No | Type: DISCN